FAERS Safety Report 9216725 (Version 2)
Quarter: 2013Q2

REPORT INFORMATION
  Report Type: Spontaneous
  Country: US (occurrence: US)
  Receive Date: 20130408
  Receipt Date: 20130426
  Transmission Date: 20140414
  Serious: No
  Sender: FDA-Public Use
  Company Number: US-PFIZER INC-2013106062

PATIENT
  Age: 66 Year
  Sex: Female

DRUGS (16)
  1. SUTENT [Suspect]
     Indication: RENAL CANCER
     Dosage: 50 MG, CYCLIC (ONE CAP DAILY)
     Dates: start: 2013
  2. XANAX [Concomitant]
     Dosage: UNK
  3. PHENERGAN [Concomitant]
     Dosage: UNK
  4. ZOFRAN [Concomitant]
     Dosage: UNK
  5. DRAMAMINE [Concomitant]
     Dosage: UNK
  6. BYSTOLIC [Concomitant]
     Dosage: UNK
  7. HYDROCHLOROTHIAZIDE [Concomitant]
     Dosage: UNK
  8. OXYCONTIN [Concomitant]
     Dosage: UNK
  9. OXYCODONE-IR [Concomitant]
     Dosage: UNK
  10. IMODIUM [Concomitant]
     Dosage: UNK
  11. NEXIUM [Concomitant]
     Dosage: UNK
  12. K-DUR [Concomitant]
     Dosage: UNK
  13. ASPIRIN [Concomitant]
     Dosage: UNK
  14. NIACIN [Concomitant]
     Dosage: UNK
  15. CO-Q-10 [Concomitant]
     Dosage: UNK
  16. MAGIC MOUTHWASH [Concomitant]
     Dosage: UNK

REACTIONS (11)
  - Nausea [Unknown]
  - Vomiting [Unknown]
  - Diarrhoea [Unknown]
  - Gastrooesophageal reflux disease [Unknown]
  - Cheilitis [Unknown]
  - Oral pain [Unknown]
  - Pain in extremity [Unknown]
  - Dysgeusia [Unknown]
  - Decreased appetite [Unknown]
  - Pleural effusion [Unknown]
  - Dehydration [Unknown]
